FAERS Safety Report 19598228 (Version 1)
Quarter: 2021Q3

REPORT INFORMATION
  Report Type: Spontaneous
  Country: DE (occurrence: DE)
  Receive Date: 20210723
  Receipt Date: 20210723
  Transmission Date: 20211014
  Serious: Yes (Other)
  Sender: FDA-Public Use
  Company Number: DE-BRISTOL-MYERS SQUIBB COMPANY-BMS-2021-070674

PATIENT
  Sex: Female

DRUGS (1)
  1. ELIQUIS [Suspect]
     Active Substance: APIXABAN
     Indication: PULMONARY EMBOLISM
     Dosage: 5 MILLIGRAM, BID
     Route: 065

REACTIONS (11)
  - High density lipoprotein decreased [Unknown]
  - Neutrophil count increased [Unknown]
  - Transferrin decreased [Unknown]
  - Mean platelet volume increased [Unknown]
  - Blood iron decreased [Unknown]
  - Blood folate decreased [Unknown]
  - Mean cell volume decreased [Unknown]
  - Blood cholesterol increased [Unknown]
  - Mean cell haemoglobin concentration decreased [Unknown]
  - Decreased activity [Unknown]
  - Low density lipoprotein increased [Unknown]
